FAERS Safety Report 8971023 (Version 1)
Quarter: 2012Q4

REPORT INFORMATION
  Report Type: 
  Country: SE (occurrence: SE)
  Receive Date: 20121218
  Receipt Date: 20121218
  Transmission Date: 20130627
  Serious: Yes (Hospitalization)
  Sender: FDA-Public Use
  Company Number: SE-PFIZER INC-2012317154

PATIENT
  Age: 78 Year
  Sex: Male
  Weight: 77 kg

DRUGS (9)
  1. GENOTROPIN [Suspect]
     Dosage: 0.2 mg, 1x/day,7 injections/week
     Route: 058
     Dates: start: 20080922
  2. KREDEX [Concomitant]
     Indication: ANGINA PECTORIS
     Dosage: UNK
     Dates: start: 19960701
  3. ZOCORD [Concomitant]
     Indication: PURE HYPERCHOLESTEROLAEMIA
     Dosage: UNK
     Dates: start: 19960701
  4. TROMBYL [Concomitant]
     Indication: ARTERIOSCLEROSIS
     Dosage: UNK
     Dates: start: 19960701
  5. LANZO [Concomitant]
     Indication: GASTRITIS
     Dosage: UNK
     Dates: start: 19990701
  6. LANZO [Concomitant]
     Indication: DUODENITIS
  7. TRADIL [Concomitant]
     Indication: PAIN
     Dosage: UNK
     Dates: start: 20070530
  8. KALCIPOS-D [Concomitant]
     Indication: OSTEOPENIA
     Dosage: UNK
     Dates: start: 20100204
  9. XATRAL [Concomitant]
     Dosage: UNK
     Dates: start: 20100614

REACTIONS (1)
  - Eye disorder [Unknown]
